FAERS Safety Report 4579906-9 (Version None)
Quarter: 2005Q1

REPORT INFORMATION
  Report Type: 
  Country: None (occurrence: None)
  Receive Date: 20050214
  Receipt Date: 20050201
  Transmission Date: 20050727
  Serious: Yes (Hospitalization)
  Sender: FDA-Public Use
  Company Number: AU-SOLVAY-00205000374

PATIENT
  Age: 82 Year
  Sex: Female

DRUGS (2)
  1. COVERSYL [Suspect]
     Indication: ILL-DEFINED DISORDER
     Dosage: DAILY DOSE: 8 MILLIGRAM(S)
     Route: 048
  2. CELEBREX [Suspect]
     Indication: ILL-DEFINED DISORDER
     Dosage: DAILY DOSE: 200 MILLIGRAM(S)
     Route: 048
     Dates: start: 20041019, end: 20041019

REACTIONS (4)
  - DYSARTHRIA [None]
  - EYELID OEDEMA [None]
  - SWELLING FACE [None]
  - SWOLLEN TONGUE [None]
